FAERS Safety Report 6484681-7 (Version None)
Quarter: 2009Q4

REPORT INFORMATION
  Report Type: 
  Country: None (occurrence: None)
  Receive Date: 20091209
  Receipt Date: 20091127
  Transmission Date: 20100525
  Serious: Yes (Death, Other)
  Sender: FDA-Public Use
  Company Number: JP-PFIZER INC-2009288161

PATIENT
  Sex: Male

DRUGS (2)
  1. XALATAN [Suspect]
     Indication: GLAUCOMA
     Dosage: UNK
     Route: 047
  2. CATALIN K [Concomitant]
     Indication: CATARACT
     Route: 031

REACTIONS (2)
  - DIABETES INSIPIDUS [None]
  - METASTASES TO CENTRAL NERVOUS SYSTEM [None]
